FAERS Safety Report 4527472-6 (Version None)
Quarter: 2004Q4

REPORT INFORMATION
  Report Type: 
  Country: None (occurrence: None)
  Receive Date: 20041215
  Receipt Date: 20020521
  Transmission Date: 20050328
  Serious: Yes (Hospitalization, Other)
  Sender: FDA-Public Use
  Company Number: PHHO2002PL03965

PATIENT
  Age: 45 Year
  Sex: Female
  Weight: 68 kg

DRUGS (5)
  1. PREDNISONE [Suspect]
     Indication: RENAL TRANSPLANT
     Dosage: 25 MG / DAY
     Route: 048
     Dates: start: 20020220
  2. PREDNISONE [Suspect]
     Dosage: 7.5 MG, QD
     Route: 048
  3. RAD [Suspect]
     Indication: RENAL TRANSPLANT
     Dosage: 3 MG/DAY
     Route: 048
     Dates: start: 20020221
  4. NEORAL [Suspect]
     Indication: RENAL TRANSPLANT
     Dosage: UNK, UNK
     Route: 048
     Dates: start: 20020221
  5. NEORAL [Suspect]
     Dosage: 75 MG/DAY
     Route: 048

REACTIONS (3)
  - CARBOHYDRATE ANTIGEN 125 INCREASED [None]
  - DYSFUNCTIONAL UTERINE BLEEDING [None]
  - OVARIAN CYST [None]
